FAERS Safety Report 6667657-6 (Version None)
Quarter: 2010Q2

REPORT INFORMATION
  Report Type: 
  Country: None (occurrence: None)
  Receive Date: 20100405
  Receipt Date: 20100324
  Transmission Date: 20101027
  Serious: Yes (Hospitalization)
  Sender: FDA-Public Use
  Company Number: B0642596A

PATIENT
  Age: 73 Year
  Sex: Female

DRUGS (3)
  1. ZOVIRAX [Suspect]
     Dosage: 2.25G PER DAY
     Route: 042
     Dates: start: 20091214, end: 20091216
  2. GENTAMICIN [Suspect]
     Dosage: 240MG PER DAY
     Route: 042
     Dates: start: 20091214, end: 20091216
  3. AMOXICILLIN TRIHYDRATE [Concomitant]
     Dosage: 12G PER DAY
     Route: 065
     Dates: start: 20091201

REACTIONS (2)
  - ANURIA [None]
  - RENAL TUBULAR NECROSIS [None]
